FAERS Safety Report 6241537-2 (Version None)
Quarter: 2009Q2

REPORT INFORMATION
  Report Type: 
  Country: None (occurrence: None)
  Receive Date: 20090623
  Receipt Date: 20040427
  Transmission Date: 20091009
  Serious: Yes (Hospitalization)
  Sender: FDA-Public Use
  Company Number: GB-ROCHE-365201

PATIENT
  Sex: Female
  Weight: 100 kg

DRUGS (18)
  1. DACLIZUMAB [Suspect]
     Route: 042
     Dates: start: 20040402, end: 20040402
  2. DACLIZUMAB [Suspect]
     Route: 042
     Dates: start: 20040416
  3. MYCOPHENOLATE MOFETIL [Suspect]
     Route: 048
     Dates: start: 20040403, end: 20040526
  4. MYCOPHENOLATE MOFETIL [Suspect]
     Route: 048
     Dates: start: 20040527
  5. SIROLIMUS [Suspect]
     Route: 048
     Dates: start: 20040402, end: 20040601
  6. TACROLIMUS [Suspect]
     Dosage: DOSE REPORTED AS 6G, WHICH SEEMS TO BE A TYPO, HENCE CODED AS 6MG
     Route: 048
     Dates: start: 20040601
  7. PREDNISOLONE [Suspect]
     Route: 048
     Dates: start: 20040406
  8. AMLODIPINE [Concomitant]
     Route: 048
     Dates: start: 20040402
  9. ASPIRIN [Concomitant]
     Route: 048
     Dates: start: 20040402
  10. AUGMENTIN [Concomitant]
     Dates: end: 20040402
  11. CO-TRIMOXAZOLE [Concomitant]
     Route: 048
     Dates: start: 20040403, end: 20041011
  12. LANSOPRAZOLE [Concomitant]
     Route: 048
     Dates: start: 20040402
  13. SIMVASTATIN [Concomitant]
     Route: 048
     Dates: start: 19980101
  14. SIMVASTATIN [Concomitant]
     Route: 048
     Dates: start: 20040403
  15. INSULIN [Concomitant]
     Route: 058
     Dates: start: 19770101
  16. GANCICLOVIR [Concomitant]
     Route: 048
     Dates: start: 20040403, end: 20040823
  17. FLUCONAZOLE [Concomitant]
     Route: 042
     Dates: start: 20040402, end: 20040412
  18. VANCOMYCIN [Concomitant]
     Route: 042
     Dates: start: 20040405, end: 20040405

REACTIONS (2)
  - GRAFT DYSFUNCTION [None]
  - WOUND INFECTION [None]
